FAERS Safety Report 9657723 (Version 3)
Quarter: 2014Q1

REPORT INFORMATION
  Report Type: Spontaneous
  Country: IT (occurrence: IT)
  Receive Date: 20131030
  Receipt Date: 20140106
  Transmission Date: 20141002
  Serious: Yes (Hospitalization)
  Sender: FDA-Public Use
  Company Number: PHHY2013IT122859

PATIENT
  Age: 49 Year
  Sex: Male

DRUGS (8)
  1. TEGRETOL [Suspect]
     Indication: EPILEPSY
     Dosage: 1000 MG, QD
     Route: 048
     Dates: start: 20070101, end: 20131003
  2. TEGRETOL [Suspect]
     Dosage: 800 MG, QD
     Route: 048
  3. ENALAPRIL [Concomitant]
     Dosage: 5 MG, UNK
     Route: 048
  4. LIBRADIN//BARNIDIPINE HYDROCHLORIDE [Concomitant]
     Dosage: 10 MG, UNK
     Route: 048
  5. GARDENALE [Concomitant]
     Dosage: 100 MG, UNK
     Route: 048
  6. LYRICA [Concomitant]
     Dosage: 450 MG, UNK
     Route: 048
  7. MEPRAL [Concomitant]
     Dosage: 20 MG, UNK
     Route: 048
  8. MODURETIC [Concomitant]
     Dosage: UNK UKN, UNK
     Dates: start: 20130930, end: 20131001

REACTIONS (5)
  - Gait disturbance [Recovering/Resolving]
  - Hypochloraemia [Recovering/Resolving]
  - Hyponatraemia [Recovering/Resolving]
  - Dizziness [Recovering/Resolving]
  - Vision blurred [Recovering/Resolving]
